FAERS Safety Report 19989078 (Version 2)
Quarter: 2021Q4

REPORT INFORMATION
  Report Type: Spontaneous
  Country: US (occurrence: US)
  Receive Date: 20211025
  Receipt Date: 20211029
  Transmission Date: 20220304
  Serious: Yes (Hospitalization, Other)
  Sender: FDA-Public Use
  Company Number: US-MLMSERVICE-20211005-3147333-1

PATIENT
  Age: 42 Year
  Sex: Female

DRUGS (6)
  1. CARBOPLATIN [Interacting]
     Active Substance: CARBOPLATIN
     Indication: Anal squamous cell carcinoma
     Dosage: UNK, FOUR CYCLE
     Route: 065
  2. NIVOLUMAB [Interacting]
     Active Substance: NIVOLUMAB
     Indication: Breast cancer
     Dosage: UNK, FOUR CYCLE
     Route: 065
  3. NIVOLUMAB [Interacting]
     Active Substance: NIVOLUMAB
     Indication: Anal squamous cell carcinoma
  4. PACLITAXEL [Interacting]
     Active Substance: PACLITAXEL
     Indication: Breast cancer
     Dosage: UNK, FOUR CYCLE
     Route: 065
  5. PACLITAXEL [Interacting]
     Active Substance: PACLITAXEL
     Indication: Anal squamous cell carcinoma
  6. PROCHLORPERAZINE [Concomitant]
     Active Substance: PROCHLORPERAZINE
     Indication: Product used for unknown indication
     Dosage: UNK
     Route: 065

REACTIONS (2)
  - Parkinsonism [Recovering/Resolving]
  - Drug interaction [Recovering/Resolving]
